FAERS Safety Report 6334279-6 (Version None)
Quarter: 2009Q3

REPORT INFORMATION
  Report Type: 
  Country: None (occurrence: None)
  Receive Date: 20090829
  Receipt Date: 20090814
  Transmission Date: 20100115
  Serious: No
  Sender: FDA-Public Use
  Company Number: US-ABBOTT-09P-163-0592130-00

PATIENT
  Sex: Female
  Weight: 78.088 kg

DRUGS (7)
  1. SIMCOR [Suspect]
     Indication: BLOOD TRIGLYCERIDES
     Dates: start: 20090501
  2. DIOVAN [Concomitant]
     Indication: BLOOD PRESSURE
  3. TRICOR [Concomitant]
     Indication: DRUG USE FOR UNKNOWN INDICATION
  4. METFORMIN HCL [Concomitant]
     Indication: DRUG USE FOR UNKNOWN INDICATION
  5. BYETTA [Concomitant]
     Indication: DIABETES MELLITUS
  6. INSULIN HUMULIN [Concomitant]
     Indication: DRUG USE FOR UNKNOWN INDICATION
  7. ASPIRIN [Concomitant]
     Indication: DRUG USE FOR UNKNOWN INDICATION

REACTIONS (4)
  - FLUSHING [None]
  - PARAESTHESIA [None]
  - PRURITUS [None]
  - SKIN BURNING SENSATION [None]
